FAERS Safety Report 7817424-2 (Version None)
Quarter: 2011Q4

REPORT INFORMATION
  Report Type: 
  Country: None (occurrence: None)
  Receive Date: 20111013
  Receipt Date: 20111004
  Transmission Date: 20120403
  Serious: Yes (Life-Threatening, Other)
  Sender: FDA-Public Use
  Company Number: CLOF-10534

PATIENT
  Age: 61 Year
  Sex: Female

DRUGS (25)
  1. EVOLTRA (CLOFARABINE) SOLUTION FOR INFUSION [Suspect]
     Indication: ACUTE MYELOID LEUKAEMIA
     Dates: start: 20070314, end: 20070318
  2. ALIMEMAZINE TARTRATE (ALIMEMAZINE TARTRATE) [Concomitant]
  3. POTASSIUM CHLORIDE [Concomitant]
  4. DAUNORUBICIN HCL [Suspect]
     Indication: ACUTE MYELOID LEUKAEMIA
     Dates: start: 20070314, end: 20070318
  5. CHLORHEXIDINE GLUCONATE [Concomitant]
  6. VANCOMYCIN [Concomitant]
  7. COMBIVENT NEBULISER [Concomitant]
  8. AMPHOTERICIN B [Concomitant]
  9. CASPOFUNGIN ACETATE [Concomitant]
  10. CALCIUM GLUCONATE [Concomitant]
  11. ACYCLOVIR [Concomitant]
  12. G-CSF (GRANULOCYTE COLONY STIMULATING FACTOR) [Concomitant]
  13. MYLOTARG [Suspect]
     Indication: ACUTE MYELOID LEUKAEMIA
     Dates: start: 20070314, end: 20070318
  14. MEROPENEM [Concomitant]
  15. CALCIUM CARBONATE [Concomitant]
  16. ORAL BALANCE (XYLITOL, POTASSIUM THIOCYANATE, GLUCOSE OXIDASE, LYSOZYM [Concomitant]
  17. CHLORPHENIRAMINE MALEATE [Concomitant]
  18. TEICOPLANIN (TEICOPLANIN) [Concomitant]
  19. COTRIM [Concomitant]
  20. LORAZEPAM [Concomitant]
  21. LOPERAMIDE [Concomitant]
  22. CLOBESTASOL PROPIONATE [Concomitant]
  23. PHOSPHATE SANDOZ [Concomitant]
  24. OMEPRAZOLE [Concomitant]
  25. ITRACONAZOLE [Concomitant]

REACTIONS (1)
  - PANCYTOPENIA [None]
